FAERS Safety Report 10970288 (Version 1)
Quarter: 2015Q1

REPORT INFORMATION
  Report Type: Spontaneous
  Country: IT (occurrence: IT)
  Receive Date: 20150331
  Receipt Date: 20150331
  Transmission Date: 20150721
  Serious: Yes (Other)
  Sender: FDA-Public Use
  Company Number: IT-ASTRAZENECA-2015SE28214

PATIENT
  Age: 70 Year
  Sex: Female

DRUGS (11)
  1. MIRTAZAPINE. [Concomitant]
     Active Substance: MIRTAZAPINE
     Indication: PSYCHOMOTOR HYPERACTIVITY
     Route: 048
  2. CARDIOASPIRIN (ASA) [Concomitant]
  3. FLUSS (FUROSEMIDE+TRIAMTERENE) [Concomitant]
     Indication: HYPERTENSION
     Dosage: 40 MG + 25 MG
  4. FERRO-GRAD (FERROUS SULFATE) [Concomitant]
  5. ENALAPRIL [Concomitant]
     Active Substance: ENALAPRIL
     Indication: HYPERTENSION
     Route: 048
  6. EN [Concomitant]
     Active Substance: DELORAZEPAM
     Indication: PSYCHOMOTOR HYPERACTIVITY
     Dosage: 1MG/ML
     Route: 048
  7. METFORMIN [Concomitant]
     Active Substance: METFORMIN HYDROCHLORIDE
     Indication: TYPE 2 DIABETES MELLITUS
     Route: 048
  8. EUGLUCON (GLIBENCLAMIDE) [Concomitant]
     Indication: TYPE 2 DIABETES MELLITUS
     Route: 048
  9. EUTIROX [Concomitant]
     Active Substance: LEVOTHYROXINE SODIUM
     Indication: HYPOTHYROIDISM
     Route: 048
  10. SEROQUEL [Suspect]
     Active Substance: QUETIAPINE FUMARATE
     Indication: PSYCHOMOTOR HYPERACTIVITY
     Route: 048
     Dates: start: 20140101, end: 20150216
  11. OMEPRAZOLE. [Concomitant]
     Active Substance: OMEPRAZOLE
     Route: 048

REACTIONS (4)
  - Glossitis [Unknown]
  - Off label use [Unknown]
  - Tongue oedema [Unknown]
  - Hyperaemia [Unknown]

NARRATIVE: CASE EVENT DATE: 20150202
